FAERS Safety Report 7880939-5 (Version None)
Quarter: 2011Q4

REPORT INFORMATION
  Report Type: 
  Country: None (occurrence: None)
  Receive Date: 20111101
  Receipt Date: 20111028
  Transmission Date: 20120403
  Serious: Yes (Hospitalization)
  Sender: FDA-Public Use
  Company Number: ES-AMGEN-UK285756

PATIENT
  Age: 63 Year
  Sex: Male

DRUGS (8)
  1. SALMETEROL [Concomitant]
     Dosage: UNK UNK, UNK
     Route: 065
  2. LORAZEPAM [Concomitant]
  3. PANITUMUMAB [Suspect]
     Indication: SQUAMOUS CELL CARCINOMA
     Dosage: 612 MG, Q3WK
     Route: 042
     Dates: start: 20080521
  4. CISPLATIN [Concomitant]
     Dosage: 134 MG, UNK
     Route: 042
     Dates: start: 20080521
  5. APREPITANT [Concomitant]
     Dosage: UNK UNK, UNK
     Route: 065
  6. FORTECORTIN [Concomitant]
  7. OMEPRAZOLE [Concomitant]
     Dosage: UNK UNK, UNK
     Route: 065
  8. GRANISETRON [Concomitant]
     Dosage: UNK UNK, UNK
     Route: 065

REACTIONS (3)
  - DYSPHAGIA [None]
  - CANDIDIASIS [None]
  - MUCOSAL INFLAMMATION [None]
